FAERS Safety Report 7684957-1 (Version None)
Quarter: 2011Q3

REPORT INFORMATION
  Report Type: 
  Country: None (occurrence: None)
  Receive Date: 20110816
  Receipt Date: 20110802
  Transmission Date: 20111222
  Serious: No
  Sender: FDA-Public Use
  Company Number: PHHY2011DE48515

PATIENT
  Sex: Male
  Weight: 86 kg

DRUGS (10)
  1. ALISKIREN [Suspect]
     Indication: HYPERTENSION
     Dosage: 150 MG/D
     Route: 048
     Dates: end: 20081106
  2. ANGIOTENSIN CONVERTING ENZYME BLOCKERS [Concomitant]
     Dosage: UNK
     Dates: end: 20100202
  3. STATINS [Concomitant]
     Dosage: UNK UKN, UNK
  4. PLATELETS [Concomitant]
     Dosage: UNK UKN, UNK
  5. DIOVAN [Suspect]
     Dosage: 120 MG/D
     Route: 048
     Dates: end: 20091112
  6. ANGIOTENSIN CONVERTING ENZYME BLOCKERS [Concomitant]
     Dosage: UNK
     Dates: start: 20100202
  7. DIOVAN [Suspect]
     Dosage: 80 MG/D
     Route: 048
     Dates: start: 20070103
  8. AMLODIPINE [Concomitant]
     Indication: BLOOD CALCIUM ABNORMAL
     Dosage: 5 MG/D
  9. FUROSEMID HEXAL [Concomitant]
     Indication: DIURETIC THERAPY
     Dosage: 40 MG/D
     Dates: start: 20100202
  10. ALISKIREN [Suspect]
     Dosage: 300 MG/D
     Route: 048
     Dates: start: 20081106

REACTIONS (1)
  - DYSPNOEA [None]
